FAERS Safety Report 24261995 (Version 5)
Quarter: 2024Q4

REPORT INFORMATION
  Report Type: Spontaneous
  Country: JP (occurrence: JP)
  Receive Date: 20240829
  Receipt Date: 20241014
  Transmission Date: 20250114
  Serious: Yes (Other)
  Sender: NOVARTIS
  Company Number: JP-002147023-NVSJ2024JP010013

PATIENT
  Sex: Male

DRUGS (39)
  1. VILDAGLIPTIN [Suspect]
     Active Substance: VILDAGLIPTIN
     Indication: Type 2 diabetes mellitus
     Dosage: UNK
     Route: 048
  2. CLOZARIL [Suspect]
     Active Substance: CLOZAPINE
     Indication: Hallucination, auditory
     Dosage: 225 MG (200 MG BEFORE BREAKFAST, 25 MG AFTER DINNER)
     Route: 048
  3. CLOZARIL [Suspect]
     Active Substance: CLOZAPINE
     Indication: Schizophrenia
     Dosage: 200 MG
     Route: 048
  4. CLOZARIL [Suspect]
     Active Substance: CLOZAPINE
     Dosage: 300 MG
     Route: 048
  5. CLOZARIL [Suspect]
     Active Substance: CLOZAPINE
     Dosage: REDUCED BY ABOUT 50 MG OR ABOUT 100 MG
     Route: 048
  6. VALSARTAN [Suspect]
     Active Substance: VALSARTAN
     Indication: Hypertension
     Dosage: UNK
     Route: 065
  7. AMLODIPINE [Suspect]
     Active Substance: AMLODIPINE BESYLATE
     Indication: Hypertension
     Dosage: 4 MG
     Route: 048
  8. AMLODIPINE [Suspect]
     Active Substance: AMLODIPINE BESYLATE
     Dosage: THE NUMBER OF MILLIGRAM OF CONCENTRATION WAS UNKNOWN BUT WAS UP TO 10 MG AND TOOK UP TO 20 MG
     Route: 048
  9. CLONAZEPAM [Suspect]
     Active Substance: CLONAZEPAM
     Indication: Depression
     Dosage: 0.5 MG, TID, MAYBE BEFORE MEAL OR AFTER MEAL
     Route: 048
  10. CLONAZEPAM [Suspect]
     Active Substance: CLONAZEPAM
     Indication: Dysphemia
     Dosage: 2 MG PRN, AT THE TIME OF INSOMNIA
     Route: 048
  11. CLONAZEPAM [Suspect]
     Active Substance: CLONAZEPAM
     Indication: Persistent depressive disorder
     Dosage: AT THE TIME OF ANXIETY, PRN
     Route: 048
  12. CLONAZEPAM [Suspect]
     Active Substance: CLONAZEPAM
     Indication: Myoclonus
     Dosage: AT THE TIME OF IRRITATED
     Route: 048
  13. CLONAZEPAM [Suspect]
     Active Substance: CLONAZEPAM
     Indication: Muscle spasms
     Dosage: AT THE TIME OF RESTLESSNESS
     Route: 048
  14. CLONAZEPAM [Suspect]
     Active Substance: CLONAZEPAM
     Indication: Paroxysmal perceptual alteration
     Dosage: 2.5 MG
     Route: 048
  15. CLONAZEPAM [Suspect]
     Active Substance: CLONAZEPAM
     Indication: Sleep apnoea syndrome
     Dosage: 5 MG
     Route: 048
  16. CLONAZEPAM [Suspect]
     Active Substance: CLONAZEPAM
     Dosage: 1.5 MG, PRN (3T AFTER 3 MEALS, 1T FOR ANXIETY AND 1T FOR INSOMNIA, 5T IN TOTAL)
     Route: 048
  17. TEMOCAPRIL HYDROCHLORIDE [Suspect]
     Active Substance: TEMOCAPRIL HYDROCHLORIDE
     Indication: Product used for unknown indication
     Dosage: UNK
     Route: 065
  18. METGLUCO [Suspect]
     Active Substance: METFORMIN HYDROCHLORIDE
     Indication: Diabetes mellitus
     Dosage: 2 OR 3 YEARS AGO
     Route: 048
  19. METGLUCO [Suspect]
     Active Substance: METFORMIN HYDROCHLORIDE
     Dosage: DOSE REDUCED
     Route: 048
  20. QUAZEPAM [Suspect]
     Active Substance: QUAZEPAM
     Indication: Product used for unknown indication
     Dosage: UNK
     Route: 065
  21. RISPERDAL [Suspect]
     Active Substance: RISPERIDONE
     Indication: Paroxysmal perceptual alteration
     Dosage: 4 MG
     Route: 048
  22. RISPERDAL [Suspect]
     Active Substance: RISPERIDONE
     Dosage: 3 MG
     Route: 048
  23. RISPERDAL [Suspect]
     Active Substance: RISPERIDONE
     Dosage: 2 MG
     Route: 048
  24. RISPERDAL [Suspect]
     Active Substance: RISPERIDONE
     Dosage: OVER DOSE
     Route: 048
  25. ETHYL LOFLAZEPATE [Suspect]
     Active Substance: ETHYL LOFLAZEPATE
     Indication: Product used for unknown indication
     Dosage: UNK
     Route: 065
  26. ETHYL LOFLAZEPATE [Suspect]
     Active Substance: ETHYL LOFLAZEPATE
     Dosage: DOSE REDUCED
     Route: 065
  27. ETHYL LOFLAZEPATE [Suspect]
     Active Substance: ETHYL LOFLAZEPATE
     Dosage: DOSE INCREASED
     Route: 065
  28. REXULTI [Concomitant]
     Active Substance: BREXPIPRAZOLE
     Indication: Product used for unknown indication
     Dosage: 1 MG
     Route: 065
  29. CYMBALTA [Concomitant]
     Active Substance: DULOXETINE HYDROCHLORIDE
     Indication: Depression
     Dosage: 20 UNK
     Route: 048
  30. CYMBALTA [Concomitant]
     Active Substance: DULOXETINE HYDROCHLORIDE
     Dosage: 40 UNK
     Route: 048
  31. CYMBALTA [Concomitant]
     Active Substance: DULOXETINE HYDROCHLORIDE
     Dosage: 60 UNK
     Route: 048
  32. ALLEGRA [Concomitant]
     Active Substance: FEXOFENADINE HYDROCHLORIDE
     Indication: Pruritus
     Dosage: UNK
     Route: 048
  33. ALLEGRA [Concomitant]
     Active Substance: FEXOFENADINE HYDROCHLORIDE
     Indication: Rhinitis allergic
  34. VIBEGRON [Concomitant]
     Active Substance: VIBEGRON
     Indication: Product used for unknown indication
     Dosage: UNK
     Route: 065
  35. MIRABEGRON [Concomitant]
     Active Substance: MIRABEGRON
     Indication: Product used for unknown indication
     Dosage: 2 DOSAGE FORM
     Route: 048
  36. AMARYL [Concomitant]
     Active Substance: GLIMEPIRIDE
     Indication: Product used for unknown indication
     Dosage: 6 MG
     Route: 048
  37. BROMAZEPAM [Concomitant]
     Active Substance: BROMAZEPAM
     Indication: Product used for unknown indication
     Dosage: 15 MG
     Route: 048
  38. PIOGLITAZONE [Concomitant]
     Active Substance: PIOGLITAZONE
     Indication: Diabetes mellitus
     Dosage: UNK
     Route: 065
  39. Basen [Concomitant]
     Indication: Product used for unknown indication
     Dosage: UNK
     Route: 048

REACTIONS (33)
  - Weight decreased [Unknown]
  - Diabetes mellitus [Unknown]
  - Hallucination [Unknown]
  - Hallucination, auditory [Unknown]
  - Seizure [Unknown]
  - Withdrawal syndrome [Unknown]
  - Sleep apnoea syndrome [Unknown]
  - Rhinitis allergic [Unknown]
  - Paroxysmal perceptual alteration [Unknown]
  - Myoclonus [Unknown]
  - Pruritus [Unknown]
  - Stupor [Unknown]
  - Depression [Unknown]
  - Muscle spasms [Unknown]
  - Anxiety [Unknown]
  - Somnolence [Unknown]
  - Persistent depressive disorder [Unknown]
  - White blood cell count decreased [Unknown]
  - Back pain [Unknown]
  - Scoliosis [Unknown]
  - Cough [Unknown]
  - Malaise [Unknown]
  - Physical deconditioning [Unknown]
  - Lacrimation increased [Unknown]
  - Abdominal distension [Unknown]
  - Oxygen saturation decreased [Unknown]
  - Insomnia [Unknown]
  - Dysphemia [Recovering/Resolving]
  - Irritability [Unknown]
  - Mania [Unknown]
  - Amnesia [Unknown]
  - Constipation [Unknown]
  - Dyspnoea [Unknown]
